FAERS Safety Report 10325719 (Version 2)
Quarter: 2015Q1

REPORT INFORMATION
  Report Type: Other
  Country: US (occurrence: US)
  Receive Date: 20140720
  Receipt Date: 20150323
  Transmission Date: 20150720
  Serious: Yes (Hospitalization, Other)
  Sender: FDA-Public Use
  Company Number: US-GSKPPD-2014GSK031231

PATIENT
  Age: 63 Year
  Sex: Male

DRUGS (7)
  1. AVANDIA [Suspect]
     Active Substance: ROSIGLITAZONE MALEATE
     Indication: DIABETES MELLITUS
     Dosage: AVANDIA WAS NOT LISTED AMONG THE PATIENTS DISCHARGE RECORDS REVIEWED.
     Route: 048
  2. BENICAR/HYDROCHLOROTHIAZIDE [Concomitant]
     Active Substance: OLMESARTAN MEDOXOMIL
     Dosage: UNIT DOSE: 40/25 MG
  3. COREG CR [Concomitant]
     Active Substance: CARVEDILOL PHOSPHATE
  4. ALDACTONE [Concomitant]
     Active Substance: SPIRONOLACTONE
  5. ASPIRIN. [Concomitant]
     Active Substance: ASPIRIN
  6. AVANDAMET [Suspect]
     Active Substance: METFORMIN HYDROCHLORIDE\ROSIGLITAZONE MALEATE
     Indication: DIABETES MELLITUS
     Dosage: UNIT DOSE: 2/500 MG?DATES OF AVANDAMET USE COULD NOT BE CONFIRMED IN RECORDS REVIEWED.
  7. CADUET [Concomitant]
     Active Substance: AMLODIPINE BESYLATE\ATORVASTATIN CALCIUM
     Dosage: UNIT DOSE: 10/20 MG

REACTIONS (1)
  - Cardiac failure congestive [Recovered/Resolved]

NARRATIVE: CASE EVENT DATE: 20080521
